FAERS Safety Report 5728979-6 (Version None)
Quarter: 2008Q2

REPORT INFORMATION
  Report Type: 
  Country: None (occurrence: None)
  Receive Date: 20080506
  Receipt Date: 20080429
  Transmission Date: 20081010
  Serious: Yes (Hospitalization, Disabling)
  Sender: FDA-Public Use
  Company Number: US-MERCK-0801USA04844

PATIENT
  Age: 81 Year
  Sex: Female

DRUGS (6)
  1. ZETIA [Suspect]
     Indication: BLOOD CHOLESTEROL INCREASED
     Route: 048
     Dates: start: 20060101, end: 20080114
  2. ANTIVERT [Concomitant]
     Route: 065
  3. BENTYL [Concomitant]
     Route: 065
  4. XANAX [Concomitant]
     Route: 065
  5. ZANTAC [Concomitant]
     Route: 065
  6. PRILOSEC [Concomitant]
     Route: 048

REACTIONS (4)
  - ARTERIAL STENOSIS LIMB [None]
  - CARDIAC DISORDER [None]
  - OEDEMA PERIPHERAL [None]
  - PAIN IN EXTREMITY [None]
